FAERS Safety Report 16456525 (Version 1)
Quarter: 2019Q3

REPORT INFORMATION
  Report Type: Spontaneous
  Country: US (occurrence: US)
  Receive Date: 20190619
  Receipt Date: 20190619
  Transmission Date: 20191004
  Serious: Yes (Hospitalization)
  Sender: FDA-Public Use
  Company Number: None

PATIENT
  Sex: Female

DRUGS (11)
  1. HYDROMORPHONE [Concomitant]
     Active Substance: HYDROMORPHONE
  2. GELCLAIR [Concomitant]
  3. LETROZOLE. [Concomitant]
     Active Substance: LETROZOLE
  4. TRIAMCINOLON [Concomitant]
  5. ZOLPIDEM [Concomitant]
     Active Substance: ZOLPIDEM TARTRATE
  6. DEXAMETHASONE. [Concomitant]
     Active Substance: DEXAMETHASONE
  7. CLOBETASOL [Concomitant]
     Active Substance: CLOBETASOL
  8. VENLAFAXINE [Concomitant]
     Active Substance: VENLAFAXINE HYDROCHLORIDE
  9. PROPANOLOL [Concomitant]
     Active Substance: PROPRANOLOL HYDROCHLORIDE
  10. CAPECITABINE. [Suspect]
     Active Substance: CAPECITABINE
     Indication: BREAST CANCER FEMALE
     Dosage: ?          OTHER FREQUENCY:4 TS QAM 3 TS QPM;?
     Route: 048
     Dates: start: 20190517, end: 20190619
  11. FUROSEMIDE. [Concomitant]
     Active Substance: FUROSEMIDE

REACTIONS (2)
  - Therapy cessation [None]
  - Hospitalisation [None]
